FAERS Safety Report 6850383-8 (Version None)
Quarter: 2010Q3

REPORT INFORMATION
  Report Type: 
  Country: None (occurrence: None)
  Receive Date: 20100716
  Receipt Date: 20071120
  Transmission Date: 20110219
  Serious: No
  Sender: FDA-Public Use
  Company Number: US-PFIZER INC-2007088384

PATIENT
  Sex: Male
  Weight: 90.26 kg

DRUGS (7)
  1. CHANTIX [Suspect]
     Indication: NICOTINE DEPENDENCE
     Route: 048
     Dates: start: 20070621, end: 20070724
  2. DRUG, UNSPECIFIED [Suspect]
  3. ZETIA [Concomitant]
     Dates: start: 20040101
  4. TRICOR [Concomitant]
     Dates: start: 20061001
  5. ZESTORETIC [Concomitant]
  6. ACETYLSALICYLIC ACID [Concomitant]
     Dates: start: 20020101
  7. VITAMIN C [Concomitant]
     Dates: start: 20020101

REACTIONS (1)
  - OEDEMA PERIPHERAL [None]
